FAERS Safety Report 20573357 (Version 2)
Quarter: 2022Q1

REPORT INFORMATION
  Report Type: Spontaneous
  Country: ES (occurrence: ES)
  Receive Date: 20220309
  Receipt Date: 20220330
  Transmission Date: 20220423
  Serious: Yes (Other)
  Sender: FDA-Public Use
  Company Number: None

PATIENT
  Age: 48 Year
  Sex: Female

DRUGS (7)
  1. KISQALI [Suspect]
     Active Substance: RIBOCICLIB
     Indication: Metastases to bone
     Dosage: 600 MG
     Route: 048
     Dates: start: 20211009, end: 20211209
  2. LETROZOLE [Suspect]
     Active Substance: LETROZOLE
     Indication: Metastasis
     Dosage: 2.5 MG, Q24H
     Route: 048
     Dates: start: 20211019, end: 20220209
  3. ZOLADEX [Suspect]
     Active Substance: GOSERELIN ACETATE
     Indication: Metastasis
     Dosage: 3.6 MG, QMO
     Route: 058
     Dates: start: 20211008, end: 20220204
  4. OMEPRAZOLE [Concomitant]
     Active Substance: OMEPRAZOLE
     Indication: Product used for unknown indication
     Dosage: 20 MG, Q12H
     Route: 048
     Dates: start: 20210922
  5. NOLOTIL [Concomitant]
     Indication: Product used for unknown indication
     Dosage: 575 MG, Q8H
     Route: 048
     Dates: start: 20211115
  6. CALCIUM CARBONATE\CHOLECALCIFEROL [Concomitant]
     Active Substance: CALCIUM CARBONATE\CHOLECALCIFEROL
     Indication: Product used for unknown indication
     Dosage: 1 DOSAGE FORM, Q24H (1.500 MG/400 UI)
     Route: 048
     Dates: start: 20210922
  7. IBUPROFEN [Concomitant]
     Active Substance: IBUPROFEN
     Indication: Product used for unknown indication
     Dosage: 600 MG, Q8H
     Route: 048
     Dates: start: 20210922

REACTIONS (1)
  - Hepatotoxicity [Not Recovered/Not Resolved]

NARRATIVE: CASE EVENT DATE: 20211209
